FAERS Safety Report 11176166 (Version 2)
Quarter: 2015Q2

REPORT INFORMATION
  Report Type: Spontaneous
  Country: US (occurrence: US)
  Receive Date: 20150609
  Receipt Date: 20150617
  Transmission Date: 20150821
  Serious: Yes (Other)
  Sender: FDA-Public Use
  Company Number: CHPA2015US007076

PATIENT
  Age: 87 Year
  Sex: Female

DRUGS (1)
  1. VOLTAREN [Suspect]
     Active Substance: DICLOFENAC SODIUM
     Indication: DIABETIC NEUROPATHY
     Dosage: A LITTLE DAB, QID
     Route: 061
     Dates: start: 201505, end: 20150603

REACTIONS (4)
  - Therapeutic response unexpected [Unknown]
  - Infection [Recovering/Resolving]
  - Malaise [Recovering/Resolving]
  - Product use issue [Unknown]

NARRATIVE: CASE EVENT DATE: 201505
